FAERS Safety Report 23953277 (Version 2)
Quarter: 2024Q3

REPORT INFORMATION
  Report Type: Spontaneous
  Country: US (occurrence: None)
  Receive Date: 20240608
  Receipt Date: 20240711
  Transmission Date: 20241017
  Serious: No
  Sender: ASTRAZENECA
  Company Number: 2024A131729

PATIENT

DRUGS (1)
  1. TEZSPIRE [Suspect]
     Active Substance: TEZEPELUMAB-EKKO
     Indication: Asthma
     Route: 058

REACTIONS (2)
  - Therapeutic response shortened [Unknown]
  - Forced expiratory volume decreased [Unknown]
